FAERS Safety Report 14821058 (Version 1)
Quarter: 2018Q2

REPORT INFORMATION
  Report Type: Spontaneous
  Country: US (occurrence: US)
  Receive Date: 20180427
  Receipt Date: 20180427
  Transmission Date: 20180711
  Serious: Yes (Hospitalization, Other)
  Sender: FDA-Public Use
  Company Number: US-ALEXION PHARMACEUTICALS INC.-A201805062

PATIENT
  Sex: Male

DRUGS (1)
  1. SOLIRIS [Suspect]
     Active Substance: ECULIZUMAB
     Indication: ATYPICAL HAEMOLYTIC URAEMIC SYNDROME
     Dosage: 900 MG, QW
     Route: 065
     Dates: start: 20180322

REACTIONS (7)
  - Blood lactate dehydrogenase increased [Not Recovered/Not Resolved]
  - Posterior reversible encephalopathy syndrome [Unknown]
  - Seizure [Unknown]
  - Haemoglobin decreased [Not Recovered/Not Resolved]
  - Demyelination [Unknown]
  - Blood creatinine increased [Not Recovered/Not Resolved]
  - Diabetes mellitus inadequate control [Not Recovered/Not Resolved]

NARRATIVE: CASE EVENT DATE: 201804
